FAERS Safety Report 9825394 (Version 1)
Quarter: 2014Q1

REPORT INFORMATION
  Report Type: Spontaneous
  Country: US (occurrence: None)
  Receive Date: 20140115
  Receipt Date: 20140115
  Transmission Date: 20141002
  Serious: Yes (Other)
  Sender: FDA-Public Use
  Company Number: None

PATIENT
  Age: 56 Year
  Sex: Female

DRUGS (3)
  1. ESCITALOPRAM [Suspect]
     Indication: ECONOMIC PROBLEM
  2. CYMBALTA [Concomitant]
  3. BUSPAR [Concomitant]

REACTIONS (2)
  - Depression [None]
  - Product substitution issue [None]
